FAERS Safety Report 16398525 (Version 1)
Quarter: 2019Q3

REPORT INFORMATION
  Report Type: Spontaneous
  Country: US (occurrence: US)
  Receive Date: 20190605
  Receipt Date: 20190605
  Transmission Date: 20191004
  Serious: Yes (Other)
  Sender: FDA-Public Use
  Company Number: None

PATIENT
  Age: 2 Year
  Sex: Male
  Weight: 12.83 kg

DRUGS (2)
  1. BANANA BOAT (AVOBENZONE\OCTOCRYLENE\OXYBENZONE) [Suspect]
     Active Substance: AVOBENZONE\OCTOCRYLENE\OXYBENZONE
     Indication: PROPHYLAXIS AGAINST SOLAR RADIATION
     Dates: start: 20190524, end: 20190524
  2. CHILDRENS ZYRTEC [Concomitant]
     Active Substance: CETIRIZINE HYDROCHLORIDE

REACTIONS (6)
  - Application site haemorrhage [None]
  - Sunburn [None]
  - Application site vesicles [None]
  - Application site erythema [None]
  - Application site burn [None]
  - Swelling face [None]

NARRATIVE: CASE EVENT DATE: 20190526
